FAERS Safety Report 8803938 (Version 1)
Quarter: 2012Q4

REPORT INFORMATION
  Report Type: 
  Country: US (occurrence: US)
  Receive Date: 20120924
  Receipt Date: 20120924
  Transmission Date: 20130627
  Serious: Yes (Hospitalization)
  Sender: FDA-Public Use
  Company Number: US-JNJFOC-20120906117

PATIENT
  Age: 41 Year
  Sex: Male

DRUGS (2)
  1. INFLIXIMAB, RECOMBINANT [Suspect]
     Indication: CROHN^S DISEASE
     Route: 042
  2. PREDNISONE [Suspect]
     Indication: CROHN^S DISEASE
     Route: 048

REACTIONS (4)
  - Intestinal perforation [Recovering/Resolving]
  - Hypoxia [Recovered/Resolved]
  - Pulmonary alveolar haemorrhage [Recovered/Resolved]
  - H1N1 influenza [Recovered/Resolved]
